FAERS Safety Report 5908148-7 (Version None)
Quarter: 2008Q4

REPORT INFORMATION
  Report Type: 
  Country: None (occurrence: None)
  Receive Date: 20081003
  Receipt Date: 20080923
  Transmission Date: 20090506
  Serious: Yes (Other)
  Sender: FDA-Public Use
  Company Number: AU-PFIZER INC-2008081825

PATIENT
  Sex: Female

DRUGS (4)
  1. CHANTIX [Suspect]
  2. PROZAC [Concomitant]
  3. LANSOPRAZOLE [Concomitant]
  4. NORMISON [Concomitant]

REACTIONS (6)
  - DIZZINESS [None]
  - HOT FLUSH [None]
  - LABYRINTHITIS [None]
  - NAUSEA [None]
  - TREMOR [None]
  - VERTIGO [None]
